FAERS Safety Report 5468174-1 (Version None)
Quarter: 2007Q3

REPORT INFORMATION
  Report Type: 
  Country: None (occurrence: None)
  Receive Date: 20070926
  Receipt Date: 20070914
  Transmission Date: 20080115
  Serious: Yes (Hospitalization, Other)
  Sender: FDA-Public Use
  Company Number: US-ELI_LILLY_AND_COMPANY-US200709002878

PATIENT
  Age: 78 Year
  Sex: Female

DRUGS (6)
  1. FORTEO [Suspect]
     Indication: OSTEOPOROSIS
     Dosage: UNK, UNK
     Dates: start: 20070619, end: 20070710
  2. FORTEO [Suspect]
     Dates: start: 20070813
  3. ANTIHYPERTENSIVES [Concomitant]
     Dosage: UNK, DAILY (1/D)
  4. ANTIHYPERTENSIVES [Concomitant]
     Dates: start: 20070101
  5. CALCIUM [Concomitant]
     Dosage: UNK, DAILY (1/D)
  6. ERGOCALCIFEROL [Concomitant]
     Dosage: UNK, DAILY (1/D)

REACTIONS (7)
  - BACK PAIN [None]
  - BLOOD PRESSURE INCREASED [None]
  - BLOOD URINE PRESENT [None]
  - DYSPNOEA [None]
  - PELVIC PAIN [None]
  - TREMOR [None]
  - WEIGHT BEARING DIFFICULTY [None]
